FAERS Safety Report 10993370 (Version 1)
Quarter: 2015Q2

REPORT INFORMATION
  Report Type: Spontaneous
  Country: US (occurrence: None)
  Receive Date: 20150406
  Receipt Date: 20150406
  Transmission Date: 20150821
  Serious: Yes (Death)
  Sender: FDA-Public Use
  Company Number: None

PATIENT
  Age: 51 Year
  Sex: Female
  Weight: 132 kg

DRUGS (39)
  1. FENTANYL. [Suspect]
     Active Substance: FENTANYL
     Indication: PREOPERATIVE CARE
     Route: 042
     Dates: start: 20150128, end: 20150128
  2. FOLIC ACID (FOLVITE) [Concomitant]
  3. TUMS [Concomitant]
     Active Substance: CALCIUM CARBONATE
  4. CETYLPYRIDINIUM BENZOCAINE [Concomitant]
  5. TRIAMCINOLONE [Concomitant]
     Active Substance: TRIAMCINOLONE
  6. MIDAZOLAM [Suspect]
     Active Substance: MIDAZOLAM\MIDAZOLAM HYDROCHLORIDE
     Indication: SEDATION
     Route: 042
  7. CLOPIDOGREL [Concomitant]
     Active Substance: CLOPIDOGREL BISULFATE
  8. MOM [Concomitant]
     Active Substance: MAGNESIUM HYDROXIDE
  9. ALBUTEROL-IPRATROPIUM [Concomitant]
  10. LEVETIRACETAM (KEPPRA) [Concomitant]
  11. SELENEIUM SULFIDE SHAMPOO [Concomitant]
  12. METFORMIN [Concomitant]
     Active Substance: METFORMIN HYDROCHLORIDE
  13. OXYCODONE [Concomitant]
     Active Substance: OXYCODONE
  14. CEPHALEXIN (KEFLEX) [Concomitant]
  15. FUROSEMIDE (LASIX) [Concomitant]
  16. LACTOBACILLUS [Concomitant]
     Active Substance: LACTOBACILLUS ACIDOPHILUS
  17. RANITIDINE [Concomitant]
     Active Substance: RANITIDINE\RANITIDINE HYDROCHLORIDE
  18. CRANBERRY. [Concomitant]
     Active Substance: CRANBERRY
  19. DIPHENHYDRAMINE [Concomitant]
     Active Substance: DIPHENHYDRAMINE
  20. POTASSIUM CHLORIDE. [Concomitant]
     Active Substance: POTASSIUM CHLORIDE
  21. PREGABALIN. [Concomitant]
     Active Substance: PREGABALIN
  22. PROCHLORPERAZINE. [Concomitant]
     Active Substance: PROCHLORPERAZINE
  23. ALBUTEROL. [Concomitant]
     Active Substance: ALBUTEROL
  24. LORAZEPAM. [Concomitant]
     Active Substance: LORAZEPAM
  25. LIPITOR [Concomitant]
     Active Substance: ATORVASTATIN CALCIUM
  26. LANTUS [Concomitant]
     Active Substance: INSULIN GLARGINE
  27. METHENAMINE [Concomitant]
     Active Substance: METHENAMINE
  28. LOSARTAN [Concomitant]
     Active Substance: LOSARTAN
  29. ZINC [Concomitant]
     Active Substance: ZINC\ZINC CHLORIDE
  30. GLIPIZIDE. [Concomitant]
     Active Substance: GLIPIZIDE
  31. ASPIRIN. [Concomitant]
     Active Substance: ASPIRIN
  32. FERROUS SULFATE [Concomitant]
     Active Substance: FERROUS SULFATE\FERROUS SULFATE, DRIED
  33. GUAIFENESIN. [Concomitant]
     Active Substance: GUAIFENESIN
  34. BISACODYL. [Concomitant]
     Active Substance: BISACODYL
  35. CALCIUM CARBONATE-VITAMIN D (CALTRATE+D) [Concomitant]
  36. VANCOMYCIN (VANCOCIN) [Concomitant]
  37. CITALOPRAM [Concomitant]
     Active Substance: CITALOPRAM HYDROBROMIDE
  38. AMITRIPTYLINE [Concomitant]
     Active Substance: AMITRIPTYLINE
  39. ACETAMINOPHEN. [Concomitant]
     Active Substance: ACETAMINOPHEN

REACTIONS (10)
  - Vomiting [None]
  - Aspiration [None]
  - Unresponsive to stimuli [None]
  - Septic shock [None]
  - Hydronephrosis [None]
  - Respiratory failure [None]
  - Urinary tract infection [None]
  - Hypoxia [None]
  - Cardio-respiratory arrest [None]
  - Calculus urinary [None]

NARRATIVE: CASE EVENT DATE: 20150128
